FAERS Safety Report 4758356-6 (Version None)
Quarter: 2005Q3

REPORT INFORMATION
  Report Type: 
  Country: None (occurrence: None)
  Receive Date: 20050826
  Receipt Date: 20050506
  Transmission Date: 20060218
  Serious: No
  Sender: FDA-Public Use
  Company Number: WAES 0505USA00902

PATIENT
  Age: 53 Year
  Sex: Male

DRUGS (4)
  1. ZETIA [Suspect]
     Indication: HYPERLIPIDAEMIA
     Dosage: 10 MG/DAILY/PO
     Route: 048
     Dates: start: 20050331, end: 20050505
  2. ACCURETIC [Concomitant]
  3. NEXIUM [Concomitant]
  4. PLAVIX [Concomitant]

REACTIONS (3)
  - GLOSSODYNIA [None]
  - ORAL SOFT TISSUE DISORDER [None]
  - RECTAL LESION [None]
